FAERS Safety Report 8413514-4 (Version None)
Quarter: 2012Q2

REPORT INFORMATION
  Report Type: 
  Country: None (occurrence: None)
  Receive Date: 20120605
  Receipt Date: 20070905
  Transmission Date: 20120825
  Serious: Yes (Hospitalization, Congenital Anomaly)
  Sender: FDA-Public Use
  Company Number: US-GLAXOSMITHKLINE-A0681550A

PATIENT
  Sex: Female
  Weight: 0.8 kg

DRUGS (3)
  1. MARIJUANA [Concomitant]
  2. PAXIL [Suspect]
     Indication: DEPRESSION
     Route: 064
  3. TOBACCO [Concomitant]

REACTIONS (6)
  - FOETAL GROWTH RESTRICTION [None]
  - CONGENITAL ANOMALY [None]
  - FOETAL HEART RATE DECELERATION [None]
  - FOETAL EXPOSURE DURING PREGNANCY [None]
  - CONGENITAL HYPOTHYROIDISM [None]
  - PREMATURE BABY [None]
